FAERS Safety Report 6124193-3 (Version None)
Quarter: 2009Q1

REPORT INFORMATION
  Report Type: 
  Country: None (occurrence: None)
  Receive Date: 20090319
  Receipt Date: 20090313
  Transmission Date: 20090719
  Serious: Yes (Hospitalization, Disabling, Other)
  Sender: FDA-Public Use
  Company Number: US-BAXTER-2009BH002420

PATIENT
  Age: 26 Year
  Sex: Male

DRUGS (16)
  1. HOLOXAN BAXTER [Suspect]
     Indication: PRECURSOR T-LYMPHOBLASTIC LYMPHOMA/LEUKAEMIA
     Route: 065
     Dates: start: 19980811, end: 19981204
  2. HOLOXAN BAXTER [Suspect]
     Route: 065
     Dates: start: 19990101, end: 19990101
  3. CYCLOPHOSPHAMIDE [Suspect]
     Indication: PRECURSOR T-LYMPHOBLASTIC LYMPHOMA/LEUKAEMIA
     Route: 065
     Dates: start: 19980101, end: 19980204
  4. CYCLOPHOSPHAMIDE [Suspect]
     Route: 065
     Dates: start: 19980811, end: 19981204
  5. VINCRISTINE SULFATE [Suspect]
     Indication: PRECURSOR T-LYMPHOBLASTIC LYMPHOMA/LEUKAEMIA
     Route: 065
     Dates: start: 19980811, end: 19981204
  6. METHOTREXATE [Suspect]
     Indication: PRECURSOR T-LYMPHOBLASTIC LYMPHOMA/LEUKAEMIA
     Route: 065
     Dates: start: 19990101, end: 19990101
  7. METHOTREXATE [Suspect]
     Route: 065
     Dates: start: 19980811, end: 19981204
  8. ETOPOSIDE [Suspect]
     Indication: PRECURSOR T-LYMPHOBLASTIC LYMPHOMA/LEUKAEMIA
     Route: 065
     Dates: start: 19990101, end: 19990101
  9. ETOPOSIDE [Suspect]
     Route: 065
     Dates: start: 19980811, end: 19981204
  10. CYTARABINE [Suspect]
     Indication: PRECURSOR T-LYMPHOBLASTIC LYMPHOMA/LEUKAEMIA
     Route: 065
     Dates: start: 19990101, end: 19990101
  11. CYTARABINE [Suspect]
     Route: 065
     Dates: start: 19980811, end: 19981204
  12. ADRIAMYCIN PFS [Suspect]
     Indication: PRECURSOR T-LYMPHOBLASTIC LYMPHOMA/LEUKAEMIA
     Route: 065
     Dates: start: 19980811, end: 19981204
  13. PREDNISONE [Suspect]
     Indication: PRECURSOR T-LYMPHOBLASTIC LYMPHOMA/LEUKAEMIA
     Route: 065
     Dates: start: 19980811, end: 19981204
  14. SOLU-MEDROL [Suspect]
     Indication: PRECURSOR T-LYMPHOBLASTIC LYMPHOMA/LEUKAEMIA
     Route: 065
     Dates: start: 19990101, end: 19990101
  15. METHYL-GAG [Suspect]
     Indication: PRECURSOR T-LYMPHOBLASTIC LYMPHOMA/LEUKAEMIA
     Route: 065
     Dates: start: 19990101, end: 19990101
  16. PURINETHOL [Suspect]
     Indication: PRECURSOR T-LYMPHOBLASTIC LYMPHOMA/LEUKAEMIA
     Route: 065
     Dates: start: 19990101

REACTIONS (6)
  - DISEASE RECURRENCE [None]
  - GASTROINTESTINAL NECROSIS [None]
  - HEADACHE [None]
  - INFECTION [None]
  - OSTEONECROSIS [None]
  - PYREXIA [None]
